FAERS Safety Report 8892605 (Version 1)
Quarter: 2012Q4

REPORT INFORMATION
  Report Type: 
  Country: US (occurrence: US)
  Receive Date: 20121107
  Receipt Date: 20121107
  Transmission Date: 20130627
  Serious: No
  Sender: FDA-Public Use
  Company Number: US-AMGEN-USASP2011054691

PATIENT
  Age: 38 Year
  Sex: Female

DRUGS (2)
  1. ENBREL [Suspect]
     Indication: PSORIATIC ARTHROPATHY
     Dosage: 50 mg, 2 times/wk
     Dates: start: 201110
  2. ENBREL [Suspect]
     Indication: PSORIASIS

REACTIONS (5)
  - Joint warmth [Recovered/Resolved]
  - Discomfort [Recovered/Resolved]
  - Restlessness [Recovered/Resolved]
  - Pyrexia [Recovered/Resolved]
  - Psoriasis [Recovered/Resolved]
